FAERS Safety Report 22219195 (Version 13)
Quarter: 2025Q2

REPORT INFORMATION
  Report Type: Report from Study
  Country: CO (occurrence: CO)
  Receive Date: 20230417
  Receipt Date: 20250410
  Transmission Date: 20250717
  Serious: Yes (Other)
  Sender: TAKEDA
  Company Number: CO-TAKEDA-2022TUS103770

PATIENT
  Sex: Female
  Weight: 64 kg

DRUGS (1)
  1. VEDOLIZUMAB [Suspect]
     Active Substance: VEDOLIZUMAB
     Indication: Colitis ulcerative
     Dates: start: 20191108, end: 20250304

REACTIONS (25)
  - Colitis ulcerative [Unknown]
  - Haematochezia [Recovering/Resolving]
  - Abdominal rigidity [Recovering/Resolving]
  - Contusion [Recovered/Resolved]
  - Inappropriate schedule of product administration [Unknown]
  - Mucous stools [Not Recovered/Not Resolved]
  - Dehydration [Not Recovered/Not Resolved]
  - Depressed mood [Not Recovered/Not Resolved]
  - Emotional disorder [Not Recovered/Not Resolved]
  - Anxiety [Unknown]
  - Stress [Unknown]
  - Insomnia [Unknown]
  - Akathisia [Unknown]
  - Self esteem decreased [Unknown]
  - Frustration tolerance decreased [Unknown]
  - Feeling of despair [Unknown]
  - Viral infection [Unknown]
  - Abdominal pain [Not Recovered/Not Resolved]
  - Decreased appetite [Unknown]
  - Rash [Not Recovered/Not Resolved]
  - Pyrexia [Recovering/Resolving]
  - Diarrhoea [Not Recovered/Not Resolved]
  - Thirst [Recovered/Resolved]
  - Asthenia [Recovering/Resolving]
  - Abdominal distension [Recovered/Resolved]

NARRATIVE: CASE EVENT DATE: 20200101
